FAERS Safety Report 19646411 (Version 1)
Quarter: 2021Q3

REPORT INFORMATION
  Report Type: Spontaneous
  Country: US (occurrence: US)
  Receive Date: 20210731
  Receipt Date: 20210731
  Transmission Date: 20211014
  Serious: Yes (Hospitalization)
  Sender: FDA-Public Use
  Company Number: None

PATIENT
  Age: 48 Year
  Sex: Male

DRUGS (18)
  1. CALCIUM+D [Concomitant]
     Active Substance: CALCIUM\VITAMIN D
  2. CLONIDINE. [Concomitant]
     Active Substance: CLONIDINE
  3. HYDRALAZINE [Concomitant]
     Active Substance: HYDRALAZINE HYDROCHLORIDE
  4. TACROLIMUS. [Concomitant]
     Active Substance: TACROLIMUS
  5. TYLENOL [Concomitant]
     Active Substance: ACETAMINOPHEN
  6. VALGANCICLOV [Concomitant]
  7. SILDENAFIL 20MG TAB [Suspect]
     Active Substance: SILDENAFIL
     Indication: PULMONARY HYPERTENSION
     Route: 048
  8. ASPIRIN. [Concomitant]
     Active Substance: ASPIRIN
  9. FEROSUL [Concomitant]
     Active Substance: FERROUS SULFATE
  10. MULTIVITAMIN [Concomitant]
     Active Substance: VITAMINS
  11. MYCOPHENOLAT [Concomitant]
     Active Substance: MYCOPHENOLATE MOFETIL
  12. GERI?KOT [Concomitant]
     Active Substance: SENNOSIDES
  13. DOX [Concomitant]
  14. PRAVASTATIN. [Concomitant]
     Active Substance: PRAVASTATIN
  15. SENNA [Concomitant]
     Active Substance: SENNA LEAF\SENNOSIDES\SENNOSIDES A AND B
  16. VITAMIN C [Concomitant]
     Active Substance: ASCORBIC ACID
  17. MAGNESIUM?OX [Concomitant]
  18. MELATONIN [Concomitant]
     Active Substance: MELATONIN

REACTIONS (2)
  - Infection [None]
  - Myocardial infarction [None]

NARRATIVE: CASE EVENT DATE: 20210724
